FAERS Safety Report 12280989 (Version 1)
Quarter: 2016Q2

REPORT INFORMATION
  Report Type: Spontaneous
  Country: US (occurrence: None)
  Receive Date: 20160418
  Receipt Date: 20160418
  Transmission Date: 20160815
  Serious: Yes (Disabling)
  Sender: FDA-Public Use
  Company Number: None

PATIENT
  Age: 54 Year
  Sex: Female
  Weight: 73.94 kg

DRUGS (7)
  1. SYNTHROID [Concomitant]
     Active Substance: LEVOTHYROXINE SODIUM
  2. DECADRON [Concomitant]
     Active Substance: DEXAMETHASONE
  3. VIT. D [Concomitant]
  4. ENBREL [Suspect]
     Active Substance: ETANERCEPT
     Indication: RHEUMATOID ARTHRITIS
     Dosage: 50CC INJECTION ONCE WEEKLY
     Dates: start: 20160203, end: 20160330
  5. CURCUMIN [Concomitant]
     Active Substance: CURCUMIN
  6. FISH OIL [Concomitant]
     Active Substance: FISH OIL
  7. TURMERIC [Concomitant]
     Active Substance: TURMERIC

REACTIONS (3)
  - Swelling [None]
  - Rash pruritic [None]
  - Rash erythematous [None]

NARRATIVE: CASE EVENT DATE: 20160402
